FAERS Safety Report 17258799 (Version 1)
Quarter: 2020Q1

REPORT INFORMATION
  Report Type: Spontaneous
  Country: FR (occurrence: FR)
  Receive Date: 20200110
  Receipt Date: 20200110
  Transmission Date: 20200409
  Serious: Yes (Hospitalization)
  Sender: FDA-Public Use
  Company Number: FR-GILEAD-2020-0446161

PATIENT
  Age: 38 Year
  Sex: Female
  Weight: 49 kg

DRUGS (11)
  1. DIAZEPAM. [Concomitant]
     Active Substance: DIAZEPAM
     Dosage: 20 MG, QD
     Route: 048
  2. WELLVONE [Concomitant]
     Active Substance: ATOVAQUONE
     Dosage: 2 DOSAGE FORM, QD
     Route: 048
     Dates: start: 20190920
  3. TRANSIPEG [Concomitant]
     Dosage: UNK
     Route: 048
  4. FUMAFER [Concomitant]
     Active Substance: FERROUS FUMARATE
     Dosage: 132 MG, QD
     Route: 048
  5. ROVALCYTE [Concomitant]
     Active Substance: VALGANCICLOVIR HYDROCHLORIDE
     Dosage: UNK
     Route: 048
     Dates: start: 20190928
  6. ISENTRESS [Suspect]
     Active Substance: RALTEGRAVIR POTASSIUM
     Indication: ACQUIRED IMMUNODEFICIENCY SYNDROME
     Dosage: 800 MG, QD
     Route: 048
     Dates: start: 20190925
  7. FUNGIZONE [Concomitant]
     Active Substance: AMPHOTERICIN B
     Dosage: UNK
     Route: 002
  8. PARACETAMOL [Concomitant]
     Active Substance: ACETAMINOPHEN
     Route: 048
  9. TRUVADA [Suspect]
     Active Substance: EMTRICITABINE\TENOFOVIR DISOPROXIL FUMARATE
     Indication: ACQUIRED IMMUNODEFICIENCY SYNDROME
     Dosage: 1 DOSAGE FORM, QD
     Route: 048
     Dates: start: 20190925
  10. SPECIAFOLDINE [Concomitant]
     Active Substance: FOLIC ACID
     Dosage: 10 MG, QD
     Route: 048
  11. IMOVANE [Concomitant]
     Active Substance: ZOPICLONE
     Dosage: 1 DOSAGE FORM, QD
     Route: 048

REACTIONS (1)
  - Psychotic behaviour [Recovering/Resolving]

NARRATIVE: CASE EVENT DATE: 20191006
